FAERS Safety Report 11321710 (Version 1)
Quarter: 2015Q3

REPORT INFORMATION
  Report Type: Spontaneous
  Country: FR (occurrence: FR)
  Receive Date: 20150729
  Receipt Date: 20150729
  Transmission Date: 20151125
  Serious: Yes (Hospitalization)
  Sender: FDA-Public Use
  Company Number: FR-HOSPIRA-2835100

PATIENT
  Age: 75 Year
  Sex: Female

DRUGS (11)
  1. CARBOPLATINE TEVA [Suspect]
     Active Substance: CARBOPLATIN
  2. CARBOPLATINE TEVA [Suspect]
     Active Substance: CARBOPLATIN
  3. POLARAMINE [Concomitant]
     Active Substance: DEXCHLORPHENIRAMINE MALEATE
     Indication: DRUG HYPERSENSITIVITY
  4. RANIPLEX                           /00550801/ [Concomitant]
     Indication: DRUG HYPERSENSITIVITY
  5. CARBOPLATINE TEVA [Suspect]
     Active Substance: CARBOPLATIN
     Indication: OVARIAN NEOPLASM
     Dosage: ONE SINGLE INTAKE
     Route: 042
     Dates: start: 20090108, end: 20090108
  6. DEXAMETHASONE. [Concomitant]
     Active Substance: DEXAMETHASONE
     Indication: PREMEDICATION
  7. CARBOPLATINE TEVA [Suspect]
     Active Substance: CARBOPLATIN
  8. POLARAMINE [Concomitant]
     Active Substance: DEXCHLORPHENIRAMINE MALEATE
     Indication: PREMEDICATION
  9. TAXOL [Concomitant]
     Active Substance: PACLITAXEL
     Indication: OVARIAN NEOPLASM
     Dosage: ONE SINGLE INTAKE
     Route: 042
     Dates: start: 20090108, end: 20090108
  10. DEXAMETHASONE. [Concomitant]
     Active Substance: DEXAMETHASONE
     Indication: DRUG HYPERSENSITIVITY
  11. RANIPLEX                           /00550801/ [Concomitant]
     Indication: PREMEDICATION

REACTIONS (7)
  - Pruritus [None]
  - Oedema [None]
  - Erythema [None]
  - Nausea [None]
  - Malaise [None]
  - Vomiting [None]
  - Asphyxia [None]

NARRATIVE: CASE EVENT DATE: 20090108
